FAERS Safety Report 18973404 (Version 1)
Quarter: 2021Q1

REPORT INFORMATION
  Report Type: Spontaneous
  Country: CN (occurrence: CN)
  Receive Date: 20210305
  Receipt Date: 20210305
  Transmission Date: 20210420
  Serious: Yes (Death)
  Sender: FDA-Public Use
  Company Number: CN-HQ SPECIALTY-CN-2021INT000034

PATIENT

DRUGS (3)
  1. CISPLATIN. [Suspect]
     Active Substance: CISPLATIN
     Indication: OESOPHAGEAL SQUAMOUS CELL CARCINOMA
     Dosage: 80 MG/M2, Q3W FOR ?6 CYCLES
     Route: 042
  2. 5?FU                               /00098801/ [Suspect]
     Active Substance: FLUOROURACIL
     Indication: OESOPHAGEAL SQUAMOUS CELL CARCINOMA
     Dosage: 800 MG/M2, DAYS 1?5 Q3W FOR ?6 CYCLES
     Route: 042
  3. TISLELIZUMAB [Suspect]
     Active Substance: TISLELIZUMAB
     Indication: OESOPHAGEAL SQUAMOUS CELL CARCINOMA
     Dosage: 200 MG, Q3W
     Route: 042

REACTIONS (1)
  - Hepatic function abnormal [Fatal]
